FAERS Safety Report 4342551-4 (Version None)
Quarter: 2004Q1

REPORT INFORMATION
  Report Type: 
  Country: None (occurrence: None)
  Receive Date: 20040213
  Receipt Date: 20040107
  Transmission Date: 20041129
  Serious: Yes (Hospitalization)
  Sender: FDA-Public Use
  Company Number: 355529

PATIENT
  Age: 50 Year
  Sex: Female
  Weight: 71.7 kg

DRUGS (3)
  1. PEGASYS [Suspect]
     Indication: HEPATITIS C
     Dosage: 180 MCG/ML 1 PER WEEK, SUBCUTANEOUS
     Route: 058
     Dates: start: 20030317, end: 20031115
  2. COPEGUS [Suspect]
     Indication: HEPATITIS C
     Dosage: 1000 MG DAILY, ORAL
     Route: 048
     Dates: start: 20030317, end: 20031115
  3. VITAMINS (MULTIVITAMIN NOS) [Concomitant]

REACTIONS (4)
  - INFLUENZA LIKE ILLNESS [None]
  - PNEUMONIA [None]
  - PYOTHORAX [None]
  - WHITE BLOOD CELL COUNT DECREASED [None]
